FAERS Safety Report 25737635 (Version 1)
Quarter: 2025Q3

REPORT INFORMATION
  Report Type: Spontaneous
  Country: BR (occurrence: BR)
  Receive Date: 20250828
  Receipt Date: 20250828
  Transmission Date: 20251020
  Serious: Yes (Other)
  Sender: ABBVIE
  Company Number: BR-ABBVIE-6436621

PATIENT
  Sex: Female

DRUGS (1)
  1. HUMIRA [Suspect]
     Active Substance: ADALIMUMAB
     Indication: Product used for unknown indication
     Route: 058
     Dates: end: 202504

REACTIONS (4)
  - Renal impairment [Unknown]
  - Nephrolithiasis [Unknown]
  - Pneumonia [Unknown]
  - Respiratory disorder [Unknown]
